FAERS Safety Report 10300861 (Version 1)
Quarter: 2014Q3

REPORT INFORMATION
  Report Type: Spontaneous
  Country: HK (occurrence: HK)
  Receive Date: 20140714
  Receipt Date: 20140714
  Transmission Date: 20150326
  Serious: Yes (Other)
  Sender: FDA-Public Use
  Company Number: HK-PAR PHARMACEUTICAL, INC-2014SCPR009245

PATIENT

DRUGS (5)
  1. KETALAR [Suspect]
     Active Substance: KETAMINE HYDROCHLORIDE
     Indication: DRUG DIVERSION
     Dosage: UNK, UNKNOWN
  2. COCAINE [Suspect]
     Active Substance: COCAINE
     Indication: DRUG DIVERSION
     Dosage: UNK, UNKNOWN
     Route: 065
  3. ECSTASY [Suspect]
     Active Substance: METHYLENEDIOXYMETHAMPHETAMINE
     Indication: DRUG DIVERSION
     Dosage: UNK, UNKNOWN
     Route: 065
  4. ALCOHOL. [Suspect]
     Active Substance: ALCOHOL
     Indication: DRUG DIVERSION
     Dosage: UNK, UNKNOWN
     Route: 065
  5. CRYSTAL METHAMPHETAMINE [Suspect]
     Active Substance: METHAMPHETAMINE
     Indication: DRUG DIVERSION
     Dosage: UNK, UNKNOWN
     Route: 065

REACTIONS (6)
  - Liver injury [Unknown]
  - Biliary tract disorder [Unknown]
  - Urinary tract disorder [Unknown]
  - Portal fibrosis [Unknown]
  - Biliary dilatation [Unknown]
  - Drug abuse [Unknown]
